FAERS Safety Report 9410657 (Version 6)
Quarter: 2013Q4

REPORT INFORMATION
  Report Type: Spontaneous
  Country: US (occurrence: US)
  Receive Date: 20130424
  Receipt Date: 20131118
  Transmission Date: 20140711
  Serious: Yes (Hospitalization, Other)
  Sender: FDA-Public Use
  Company Number: ADR-2013-00696

PATIENT
  Sex: Male

DRUGS (1)
  1. GABLOFEN [Suspect]
     Indication: MUSCLE SPASTICITY

REACTIONS (17)
  - Head injury [None]
  - Aphasia [None]
  - Muscle tightness [None]
  - Muscle spasticity [None]
  - Device failure [None]
  - Pump reservoir issue [None]
  - Device issue [None]
  - Underdose [None]
  - Hallucination [None]
  - Slow speech [None]
  - Rash [None]
  - Tachycardia [None]
  - Fall [None]
  - Drug withdrawal syndrome [None]
  - Overdose [None]
  - Agitation [None]
  - Convulsion [None]
